FAERS Safety Report 6000140-X (Version None)
Quarter: 2008Q4

REPORT INFORMATION
  Report Type: 
  Country: None (occurrence: None)
  Receive Date: 20081215
  Receipt Date: 20080819
  Transmission Date: 20090506
  Serious: No
  Sender: FDA-Public Use
  Company Number: US-AMGEN-KDL297487

PATIENT
  Sex: Female

DRUGS (3)
  1. ENBREL [Suspect]
     Indication: PSORIASIS
     Route: 058
     Dates: start: 20080701
  2. PRAVACHOL [Concomitant]
  3. SYNTHROID [Concomitant]

REACTIONS (3)
  - FLUSHING [None]
  - HYPERHIDROSIS [None]
  - MENOPAUSAL SYMPTOMS [None]
